FAERS Safety Report 4840947-5 (Version None)
Quarter: 2005Q4

REPORT INFORMATION
  Report Type: 
  Country: None (occurrence: None)
  Receive Date: 20051130
  Receipt Date: 20050803
  Transmission Date: 20060501
  Serious: Yes (Life-Threatening)
  Sender: FDA-Public Use
  Company Number: US-BRISTOL-MYERS SQUIBB COMPANY-13060660

PATIENT
  Sex: Male
  Weight: 43 kg

DRUGS (6)
  1. ABILIFY [Suspect]
     Indication: BIPOLAR DISORDER
     Dosage: DOSAGE: INITIATED AT 5MG DAILY THE FIRST 2 WEEKS, INCREASED TO 10MG FOR ONE WEEK, THEN 15MG DAILY
     Route: 048
     Dates: start: 20040401, end: 20050624
  2. CARNITINE [Concomitant]
     Indication: METABOLIC DISORDER
  3. COENZYME Q10 [Concomitant]
  4. TOPAMAX [Concomitant]
  5. LITHIUM [Concomitant]
     Indication: AFFECTIVE DISORDER
  6. MELATONIN [Concomitant]

REACTIONS (8)
  - AGGRESSION [None]
  - CONVULSION [None]
  - HALLUCINATION, AUDITORY [None]
  - HALLUCINATION, VISUAL [None]
  - INSOMNIA [None]
  - MANIA [None]
  - PARANOIA [None]
  - SUICIDE ATTEMPT [None]
